FAERS Safety Report 7719358-0 (Version None)
Quarter: 2011Q3

REPORT INFORMATION
  Report Type: 
  Country: None (occurrence: None)
  Receive Date: 20110824
  Receipt Date: 20110810
  Transmission Date: 20111222
  Serious: Yes (Hospitalization, Other)
  Sender: FDA-Public Use
  Company Number: JPI-P-007866

PATIENT
  Age: 54 Year
  Sex: Female
  Weight: 67.586 kg

DRUGS (17)
  1. DEPO-ESTRADIOL [Concomitant]
  2. HYDROCODONE [Concomitant]
  3. BENAZEPRIL HYDROCHLORIDE [Concomitant]
  4. BUPROPION HCL [Concomitant]
  5. CLONAZEPAM [Concomitant]
  6. FLUOXETINE [Concomitant]
  7. CARBIDOPA AND LEVODOPA [Concomitant]
  8. HYDROCODONE AND ASPIRIN [Concomitant]
  9. MORPHINE [Concomitant]
  10. AMLODIPINE [Concomitant]
  11. FLUOXETINE [Concomitant]
  12. XYREM [Suspect]
     Indication: CATAPLEXY
     Dosage: 6 GM (3 GM,2 IN 1 D), ORAL
     Route: 048
     Dates: start: 20080123
  13. MUSCLE RELAXANTS [Suspect]
     Dosage: DRUG USE FOR UNKNOWN INDICATION[10057097] [V.12.1]
  14. CORTISONE ACETATE [Suspect]
     Indication: BACK DISORDER
     Dosage: 0.0714 DOSAGE FORMS (1 DOSAGE FORMS,1 IN 2 WK), INJECTION
     Dates: start: 20110420
  15. CETIRIZINE HCL [Concomitant]
  16. LEVOTHYROXINE SODIUM [Concomitant]
  17. CELECOXIB [Concomitant]

REACTIONS (21)
  - INTERVERTEBRAL DISC DISORDER [None]
  - NIGHT SWEATS [None]
  - POOR QUALITY SLEEP [None]
  - GLOSSODYNIA [None]
  - SURGICAL FAILURE [None]
  - SOMNAMBULISM [None]
  - FACIAL PAIN [None]
  - SLEEP TALKING [None]
  - INCREASED APPETITE [None]
  - HUNGER [None]
  - ACCIDENTAL OVERDOSE [None]
  - ABNORMAL DREAMS [None]
  - DEVICE CONNECTION ISSUE [None]
  - PAIN IN EXTREMITY [None]
  - GLOSSITIS [None]
  - INCOHERENT [None]
  - WEIGHT INCREASED [None]
  - INTERVERTEBRAL DISC PROTRUSION [None]
  - BLADDER SPASM [None]
  - SWOLLEN TONGUE [None]
  - TOOTH ABSCESS [None]
